FAERS Safety Report 20543671 (Version 2)
Quarter: 2022Q2

REPORT INFORMATION
  Report Type: Spontaneous
  Country: HN (occurrence: HN)
  Receive Date: 20220302
  Receipt Date: 20220411
  Transmission Date: 20220720
  Serious: Yes (Other)
  Sender: FDA-Public Use
  Company Number: HN-BIOGEN-2022BI01088470

PATIENT
  Sex: Female
  Weight: 90.9 kg

DRUGS (4)
  1. TYSABRI [Suspect]
     Active Substance: NATALIZUMAB
     Indication: Relapsing multiple sclerosis
     Route: 042
     Dates: start: 20190920
  2. ACETAMINOPHEN [Concomitant]
     Active Substance: ACETAMINOPHEN
     Indication: Product used for unknown indication
     Route: 065
  3. Decalan (lidocaine HCl + cetylpyridinium Cl) [Concomitant]
     Indication: Product used for unknown indication
     Route: 065
  4. VITAMIN C [Concomitant]
     Active Substance: ASCORBIC ACID
     Indication: Product used for unknown indication
     Route: 065

REACTIONS (13)
  - Schizophrenia [Not Recovered/Not Resolved]
  - Incoherent [Unknown]
  - Crying [Unknown]
  - Fall [Recovered/Resolved]
  - Head injury [Recovered/Resolved]
  - Blood pressure increased [Recovered/Resolved]
  - Delirium [Not Recovered/Not Resolved]
  - Disorientation [Recovered/Resolved]
  - SARS-CoV-2 test positive [Recovered/Resolved]
  - Gait disturbance [Not Recovered/Not Resolved]
  - Bipolar disorder [Unknown]
  - Pyrexia [Recovered/Resolved]
  - Dizziness [Not Recovered/Not Resolved]

NARRATIVE: CASE EVENT DATE: 20200101
